FAERS Safety Report 22208373 (Version 2)
Quarter: 2023Q2

REPORT INFORMATION
  Report Type: Spontaneous
  Country: IT (occurrence: IT)
  Receive Date: 20230413
  Receipt Date: 20230428
  Transmission Date: 20230722
  Serious: Yes (Other)
  Sender: FDA-Public Use
  Company Number: IT-TEVA-2023-IT-2875725

PATIENT
  Age: 6 Year
  Sex: Female

DRUGS (7)
  1. METHOTREXATE [Suspect]
     Active Substance: METHOTREXATE
     Indication: Medulloblastoma
     Dosage: DOSE: 8G/M2
     Route: 065
     Dates: start: 2018
  2. ETOPOSIDE [Suspect]
     Active Substance: ETOPOSIDE
     Indication: Medulloblastoma
     Dosage: DOSE: 2.4G/M2
     Route: 065
     Dates: start: 2018
  3. CARBOPLATIN [Suspect]
     Active Substance: CARBOPLATIN
     Indication: Medulloblastoma
     Route: 065
     Dates: start: 2018
  4. VINORELBINE [Suspect]
     Active Substance: VINORELBINE TARTRATE
     Indication: Medulloblastoma
     Route: 065
     Dates: start: 2018
  5. VINORELBINE [Suspect]
     Active Substance: VINORELBINE TARTRATE
     Route: 065
     Dates: start: 2019
  6. VINORELBINE [Suspect]
     Active Substance: VINORELBINE TARTRATE
     Dosage: 20MG/M2 30MIN INFUSION FOR 1 DAY, REPEATED EVERY 3 WEEKS
     Route: 050
     Dates: start: 2019
  7. CYCLOPHOSPHAMIDE [Suspect]
     Active Substance: CYCLOPHOSPHAMIDE
     Indication: Medulloblastoma
     Dosage: DOSE: 4G/M2
     Route: 065
     Dates: start: 2018

REACTIONS (3)
  - Leukoencephalopathy [Unknown]
  - Retinopathy [Unknown]
  - Cytomegalovirus infection reactivation [Recovered/Resolved]
